FAERS Safety Report 10497264 (Version 2)
Quarter: 2016Q2

REPORT INFORMATION
  Report Type: Report from Study
  Country: US (occurrence: US)
  Receive Date: 20140815
  Receipt Date: 20160411
  Transmission Date: 20160815
  Serious: Yes (Other)
  Sender: FDA-Public Use
  Company Number: ADR-2014-00854

PATIENT
  Age: 68 Year
  Sex: Male

DRUGS (16)
  1. COMPOUNDED BACLOFEN [Suspect]
     Active Substance: BACLOFEN
     Dosage: 232.83MCG/DAY
     Route: 037
     Dates: start: 20140331, end: 20140423
  2. BUPIVACAINE. [Suspect]
     Active Substance: BUPIVACAINE
     Dosage: 10.921MG/DAY
     Route: 037
     Dates: start: 20140423, end: 20140506
  3. BUPIVACAINE. [Suspect]
     Active Substance: BUPIVACAINE
     Dosage: 8.192MG/DAY
     Route: 037
     Dates: start: 20140506
  4. COMPOUNDED BACLOFEN [Suspect]
     Active Substance: BACLOFEN
     Dosage: 321.53MCG/DAY
     Route: 037
     Dates: start: 20140123
  5. BUPIVACAINE. [Suspect]
     Active Substance: BUPIVACAINE
     Dosage: 12.828MG/ML
     Route: 037
     Dates: start: 20140123
  6. BUPIVACAINE. [Suspect]
     Active Substance: BUPIVACAINE
     Dosage: 9.289MG/DAY
     Route: 037
     Dates: start: 20140331, end: 20140423
  7. MORPHINE [Suspect]
     Active Substance: MORPHINE
     Dosage: 1.5754MG/DAY
     Route: 037
     Dates: start: 20140331, end: 20140423
  8. MORPHINE [Suspect]
     Active Substance: MORPHINE
     Dosage: 2.1755MG/ML
     Route: 037
     Dates: start: 20140123
  9. COMPOUNDED BACLOFEN [Suspect]
     Active Substance: BACLOFEN
     Dosage: 137.3MCG/DAY
     Route: 037
     Dates: start: 20140506
  10. FENTANYL. [Suspect]
     Active Substance: FENTANYL
     Dosage: 958.1MCG/DAY
     Route: 037
     Dates: start: 20140506
  11. FENTANYL. [Suspect]
     Active Substance: FENTANYL
     Dosage: 1,277.3MCG/DAY
     Route: 037
     Dates: start: 20140423, end: 20140506
  12. FENTANYL. [Suspect]
     Active Substance: FENTANYL
     Dosage: 1,086.5MCG/DAY
     Route: 037
     Dates: start: 20140331, end: 20140423
  13. COMPOUNDED BACLOFEN [Suspect]
     Active Substance: BACLOFEN
     Dosage: 183.04MCG/DAY
     Route: 037
     Dates: start: 20140423, end: 20140506
  14. MORPHINE [Suspect]
     Active Substance: MORPHINE
     Dosage: 1.8521MG/DAY
     Route: 037
     Dates: start: 20140423, end: 20140506
  15. MORPHINE [Suspect]
     Active Substance: MORPHINE
     Dosage: 1.3893MG/DAY
     Route: 037
     Dates: start: 20140506
  16. FENTANYL. [Suspect]
     Active Substance: FENTANYL
     Dosage: 1,500.4MCG/DAY
     Route: 037
     Dates: start: 20140123

REACTIONS (5)
  - Somnolence [Recovered/Resolved]
  - Lethargy [Recovered/Resolved]
  - Overdose [Recovered/Resolved]
  - Muscle spasticity [Recovered/Resolved]
  - Underdose [Recovered/Resolved]
